FAERS Safety Report 25233602 (Version 2)
Quarter: 2025Q2

REPORT INFORMATION
  Report Type: Spontaneous
  Country: US (occurrence: US)
  Receive Date: 20250424
  Receipt Date: 20250505
  Transmission Date: 20250717
  Serious: No
  Sender: KYOWA
  Company Number: US-KYOWAKIRIN-2024KK005716

PATIENT

DRUGS (4)
  1. CRYSVITA [Suspect]
     Active Substance: BUROSUMAB-TWZA
     Indication: Hereditary hypophosphataemic rickets
     Dosage: 20 MG, 1X/2 WEEKS (TOTAL DOSE 50MG EVERY 2 WEEKS)
     Route: 058
     Dates: start: 201811
  2. CRYSVITA [Suspect]
     Active Substance: BUROSUMAB-TWZA
     Indication: Mineral metabolism disorder
     Dosage: 50 MG, 1X/4 WEEKS (20MG VIAL FOR A TOTAL DOSE OF 50MG EVERY 4 WEEKS.)
     Route: 058
     Dates: start: 201811
  3. CRYSVITA [Suspect]
     Active Substance: BUROSUMAB-TWZA
     Indication: Hereditary hypophosphataemic rickets
     Dosage: 30 MG, 1X/2 WEEKS (TOTAL DOSE 50MG EVERY 2 WEEKS)
     Route: 058
     Dates: start: 201811
  4. CRYSVITA [Suspect]
     Active Substance: BUROSUMAB-TWZA
     Indication: Mineral metabolism disorder
     Dosage: 50 MG, 1X/4 WEEKS (30MG VIAL FOR A TOTAL DOSE OF 50MG EVERY 4 WEEKS.)
     Route: 058
     Dates: start: 201811

REACTIONS (3)
  - Weight increased [Unknown]
  - Therapy interrupted [Unknown]
  - Inappropriate schedule of product administration [Not Recovered/Not Resolved]
